FAERS Safety Report 8108492-1 (Version None)
Quarter: 2012Q1

REPORT INFORMATION
  Report Type: 
  Country: None (occurrence: None)
  Receive Date: 20120202
  Receipt Date: 20120130
  Transmission Date: 20120608
  Serious: Yes (Other)
  Sender: FDA-Public Use
  Company Number: GB-PFIZER INC-2011306176

PATIENT
  Age: 83 Year
  Sex: Male
  Weight: 67 kg

DRUGS (12)
  1. PARACETAMOL [Concomitant]
     Indication: OSTEOARTHRITIS
     Dosage: 500 MG, 2X/DAY
  2. FUROSEMIDE [Concomitant]
     Dosage: 20 MG DAILY
  3. LOPERAMIDE [Concomitant]
     Indication: IRRITABLE BOWEL SYNDROME
     Dosage: 2-4 MG DAILY
  4. ATORVASTATIN [Concomitant]
     Indication: MYOCARDIAL ISCHAEMIA
     Dosage: 10 MG DAILY
     Route: 048
     Dates: start: 19980101
  5. ACETYLSALICYLIC ACID [Concomitant]
     Indication: MYOCARDIAL ISCHAEMIA
     Dosage: 75 MG DAILY
     Route: 048
     Dates: start: 19980101
  6. FUROSEMIDE [Concomitant]
     Dosage: 40 MG DAILY
  7. INSPRA [Suspect]
     Indication: CARDIAC FAILURE
  8. DILTIAZEM - SLOW RELEASE [Concomitant]
     Indication: MYOCARDIAL ISCHAEMIA
     Dosage: 120 MG, 2X/DAY
     Route: 048
     Dates: start: 19980101
  9. CAPTOPRIL [Concomitant]
     Indication: MYOCARDIAL ISCHAEMIA
     Dosage: 12.5 MG, 2X/DAY
     Route: 048
     Dates: start: 19980101
  10. PREDNISOLONE [Concomitant]
     Dosage: 10 MG DAILY
     Route: 048
  11. INSPRA [Suspect]
     Indication: MYOCARDIAL ISCHAEMIA
     Dosage: 12.5 MG DAILY
     Route: 048
     Dates: start: 20110701, end: 20111206
  12. PREDNISOLONE [Concomitant]
     Indication: DRESSLER'S SYNDROME
     Dosage: 30 MG DAILY
     Route: 048
     Dates: start: 19980101

REACTIONS (10)
  - NAUSEA [None]
  - THROMBOCYTOPENIA [None]
  - DIZZINESS [None]
  - DYSPNOEA [None]
  - CARDIAC PACEMAKER INSERTION [None]
  - BLOOD CREATININE INCREASED [None]
  - CONTUSION [None]
  - GLOMERULAR FILTRATION RATE DECREASED [None]
  - BLOOD POTASSIUM INCREASED [None]
  - POLYURIA [None]
